FAERS Safety Report 4344842-X (Version None)
Quarter: 2004Q2

REPORT INFORMATION
  Report Type: 
  Country: None (occurrence: None)
  Receive Date: 20040420
  Receipt Date: 19950929
  Transmission Date: 20050107
  Serious: Yes (Death, Life-Threatening, Hospitalization)
  Sender: FDA-Public Use
  Company Number: WAES 95110785

PATIENT
  Age: 8 Day
  Sex: Female

DRUGS (2)
  1. INDOCIN I.V. [Suspect]
     Indication: PATENT DUCTUS ARTERIOSUS
     Dosage: IV
     Route: 042
     Dates: start: 19950517, end: 19950526
  2. DOPAMINE HCL [Concomitant]

REACTIONS (5)
  - NEONATAL DISORDER [None]
  - OLIGURIA [None]
  - PULMONARY CONGESTION [None]
  - PULMONARY HAEMORRHAGE [None]
  - PULMONARY OEDEMA NEONATAL [None]
